FAERS Safety Report 13001256 (Version 2)
Quarter: 2016Q4

REPORT INFORMATION
  Report Type: Spontaneous
  Country: US (occurrence: US)
  Receive Date: 20161206
  Receipt Date: 20161216
  Transmission Date: 20170207
  Serious: No
  Sender: FDA-Public Use
  Company Number: US-PFIZER INC-2015456274

PATIENT
  Age: 50 Year
  Sex: Female
  Weight: 96.16 kg

DRUGS (20)
  1. ALLEGRA [Concomitant]
     Active Substance: FEXOFENADINE HYDROCHLORIDE
     Indication: RHINITIS ALLERGIC
  2. VENTOLIN [Concomitant]
     Active Substance: ALBUTEROL SULFATE
     Indication: OBSTRUCTIVE AIRWAYS DISORDER
     Dosage: AS NEEDED (2 PUFFS B.I.D. P.R.N.) (TWO PUFF EVERY 20 MINUTES)
     Route: 055
  3. VENTOLIN [Concomitant]
     Active Substance: ALBUTEROL SULFATE
     Dosage: UNK UNK, AS NEEDED [2 PUFFS EVERY 20 MINUTES FOR 2 HRS, P.R.N]
  4. BENADRYL [Concomitant]
     Active Substance: DIPHENHYDRAMINE HYDROCHLORIDE
     Dosage: 50 MG, AS NEEDED
     Route: 048
     Dates: start: 200001
  5. LYRICA [Suspect]
     Active Substance: PREGABALIN
     Dosage: 150 MG, 3X/DAY
     Route: 048
     Dates: start: 20161001
  6. ATROVENT [Concomitant]
     Active Substance: IPRATROPIUM BROMIDE
     Indication: RHINITIS ALLERGIC
     Dosage: UNK UNK, 2X/DAY
     Route: 045
     Dates: start: 201604
  7. ZADITOR [Concomitant]
     Active Substance: KETOTIFEN FUMARATE
     Dosage: 2 GTT, AS NEEDED [EACH EYE,B.I.D]
  8. LYRICA [Suspect]
     Active Substance: PREGABALIN
     Indication: MOVEMENT DISORDER
     Dosage: 150 MG, 2X/DAY
     Dates: start: 20090517
  9. LYRICA [Suspect]
     Active Substance: PREGABALIN
     Dosage: 150 MG, 2X/DAY
     Route: 048
     Dates: start: 200910
  10. SINGULAIR [Concomitant]
     Active Substance: MONTELUKAST SODIUM
     Indication: RHINITIS ALLERGIC
     Dosage: 10 MG, 1X/DAY (1 TABLET- Q.D. - P.M.)
     Route: 048
     Dates: start: 200004
  11. ZADITOR [Concomitant]
     Active Substance: KETOTIFEN FUMARATE
     Indication: HYPERSENSITIVITY
     Dosage: 4 GTT, 2X/DAY
     Dates: start: 200603
  12. ALBUTEROL. [Concomitant]
     Active Substance: ALBUTEROL
     Dosage: AS NEEDED (2 PUFFS B.I.D. P.R.N.)
     Route: 055
  13. LYRICA [Suspect]
     Active Substance: PREGABALIN
     Indication: FIBROMYALGIA
     Dosage: 100 MG, UNK
  14. LYRICA [Suspect]
     Active Substance: PREGABALIN
     Dosage: 150 MG, 3X/DAY
     Route: 048
     Dates: start: 20161206
  15. TYLENOL [Concomitant]
     Active Substance: ACETAMINOPHEN
     Dosage: 500 MG, AS NEEDED
  16. ATROVENT [Concomitant]
     Active Substance: IPRATROPIUM BROMIDE
     Dosage: 29 UG, AS NEEDED [025% 1 SPRAY EA NOSTRIL B.I.D]
     Route: 045
  17. ALLEGRA [Concomitant]
     Active Substance: FEXOFENADINE HYDROCHLORIDE
     Indication: HYPERSENSITIVITY
     Dosage: 180 MG, 1X/DAY (Q.D.-A.M.)
     Route: 048
     Dates: start: 200001
  18. HYDROCODONE BITARTRATE AND ACETAMINOPHEN [Concomitant]
     Active Substance: ACETAMINOPHEN\HYDROCODONE BITARTRATE
     Indication: FIBROMYALGIA
     Dosage: 1 DF, AS NEEDED (1 TABLET Q. 6 HRS P.R.N.)/ (6-8 HOURS)HYDROCODONE; 7.5 MG,ACETAMINOPHEN: 325 MG
     Dates: start: 20090417
  19. MAGOX [Concomitant]
     Indication: MAGNESIUM DEFICIENCY
     Dosage: 400 MG, 2X/DAY
     Route: 048
     Dates: start: 2009
  20. TRIAMCINOLONE ACETONIDE. [Concomitant]
     Active Substance: TRIAMCINOLONE ACETONIDE
     Dosage: UNK, UNK, AS NEEDED (T.I.D. P.R.N.)

REACTIONS (4)
  - Peripheral swelling [Not Recovered/Not Resolved]
  - Weight increased [Unknown]
  - Condition aggravated [Not Recovered/Not Resolved]
  - Drug ineffective [Unknown]

NARRATIVE: CASE EVENT DATE: 2016
